FAERS Safety Report 5814333-5 (Version None)
Quarter: 2008Q3

REPORT INFORMATION
  Report Type: 
  Country: None (occurrence: None)
  Receive Date: 20080715
  Receipt Date: 20080630
  Transmission Date: 20090109
  Serious: Yes (Other)
  Sender: FDA-Public Use
  Company Number: ALA_00095_2008

PATIENT
  Age: 27 Year
  Sex: Female

DRUGS (2)
  1. OXYMETHOLONE [Suspect]
     Indication: APLASTIC ANAEMIA
     Dosage: DF
  2. NEUPOGEN [Suspect]
     Indication: NEUTROPENIA
     Dosage: 150 ?G 3 X/WEEK

REACTIONS (7)
  - BONE MARROW TRANSPLANT [None]
  - FALL [None]
  - SPLENIC HAEMATOMA [None]
  - SPLENIC INJURY [None]
  - SPLENOMEGALY [None]
  - THROMBOCYTOPENIA [None]
  - VASCULAR PURPURA [None]
